FAERS Safety Report 19031745 (Version 1)
Quarter: 2021Q1

REPORT INFORMATION
  Report Type: Spontaneous
  Country: GB (occurrence: GB)
  Receive Date: 20210319
  Receipt Date: 20210319
  Transmission Date: 20210420
  Serious: Yes (Disabling, Other)
  Sender: FDA-Public Use
  Company Number: GB-PFIZER INC-2021258422

PATIENT
  Age: 21 Year
  Sex: Female
  Weight: 56.7 kg

DRUGS (1)
  1. SERTRALINE HCL [Suspect]
     Active Substance: SERTRALINE HYDROCHLORIDE
     Indication: MENTAL DISORDER
     Dosage: 50 MG
     Route: 048
     Dates: start: 20210303, end: 20210305

REACTIONS (3)
  - Product use issue [Unknown]
  - Off label use [Unknown]
  - Suppressed lactation [Not Recovered/Not Resolved]

NARRATIVE: CASE EVENT DATE: 20210303
